FAERS Safety Report 7230681-9 (Version None)
Quarter: 2011Q1

REPORT INFORMATION
  Report Type: 
  Country: None (occurrence: None)
  Receive Date: 20110118
  Receipt Date: 20110107
  Transmission Date: 20110831
  Serious: Yes (Other)
  Sender: FDA-Public Use
  Company Number: PHHY2010JP76554

PATIENT

DRUGS (9)
  1. RASILEZ [Suspect]
     Indication: HYPERTENSION
     Dosage: 150 MG, UNK
     Route: 048
     Dates: start: 20101027, end: 20101027
  2. ALDACTONE [Concomitant]
     Indication: CARDIAC FAILURE
     Dosage: 25 MG, UNK
     Route: 048
     Dates: start: 20080911
  3. TORSEMIDE [Concomitant]
     Indication: CARDIAC FAILURE
     Dosage: 08 MG, UNK
     Route: 048
     Dates: start: 20080912
  4. INDERAL [Concomitant]
     Indication: CARDIAC FAILURE
     Dosage: 1 MG, UNK
     Route: 048
     Dates: start: 20090402
  5. DIOVAN [Concomitant]
     Indication: HYPERTENSION
     Dosage: 160 MG, DAILY
     Route: 048
     Dates: start: 20090402, end: 20101026
  6. WARFARIN SODIUM [Concomitant]
     Indication: CARDIAC FAILURE
     Dosage: 02 MG, UNK
     Route: 048
     Dates: start: 20081128
  7. RHYTHMY [Concomitant]
     Indication: INSOMNIA
     Dosage: 1 MG, UNK
     Route: 048
     Dates: start: 20090917
  8. AMARYL [Concomitant]
     Indication: DIABETES MELLITUS
     Dosage: 02 MG, UNK
     Route: 048
     Dates: start: 20081128
  9. GRIMAC [Concomitant]
     Indication: GASTRITIS
     Dosage: 2000 MG, UNK
     Dates: start: 20090402

REACTIONS (1)
  - PAIN IN EXTREMITY [None]
